FAERS Safety Report 16361288 (Version 2)
Quarter: 2019Q4

REPORT INFORMATION
  Report Type: Spontaneous
  Country: JP (occurrence: JP)
  Receive Date: 20190528
  Receipt Date: 20191001
  Transmission Date: 20200122
  Serious: Yes (Other)
  Sender: FDA-Public Use
  Company Number: PHJP2019JP005645

PATIENT
  Sex: Female

DRUGS (4)
  1. VOTRIENT [Suspect]
     Active Substance: PAZOPANIB HYDROCHLORIDE
     Dosage: 400 MG, UNK
     Route: 048
     Dates: start: 201612, end: 201702
  2. VOTRIENT [Suspect]
     Active Substance: PAZOPANIB HYDROCHLORIDE
     Indication: METASTATIC RENAL CELL CARCINOMA
     Dosage: 800 MG, UNK
     Route: 048
     Dates: start: 201511
  3. VOTRIENT [Suspect]
     Active Substance: PAZOPANIB HYDROCHLORIDE
     Dosage: 600 MG, UNK
     Route: 048
     Dates: start: 201602
  4. VOTRIENT [Suspect]
     Active Substance: PAZOPANIB HYDROCHLORIDE
     Dosage: 200 MG, UNK
     Route: 048
     Dates: start: 201902

REACTIONS (12)
  - Hypothyroidism [Unknown]
  - Abdominal pain upper [Unknown]
  - Oedema [Unknown]
  - Decreased appetite [Unknown]
  - Stomatitis [Recovered/Resolved]
  - Glossitis [Unknown]
  - Diarrhoea [Unknown]
  - Liver disorder [Unknown]
  - Gastrointestinal oedema [Recovered/Resolved]
  - Ascites [Recovered/Resolved]
  - Malaise [Unknown]
  - Hypertension [Unknown]
